FAERS Safety Report 11525839 (Version 1)
Quarter: 2015Q3

REPORT INFORMATION
  Report Type: Spontaneous
  Country: US (occurrence: US)
  Receive Date: 20150918
  Receipt Date: 20150918
  Transmission Date: 20151125
  Serious: Yes (Other)
  Sender: FDA-Public Use
  Company Number: US-TAKEDA-TPA2012A03348

PATIENT

DRUGS (9)
  1. METFORMIN [Concomitant]
     Active Substance: METFORMIN HYDROCHLORIDE
     Route: 065
     Dates: start: 2005
  2. ACTOS [Suspect]
     Active Substance: PIOGLITAZONE HYDROCHLORIDE
     Route: 065
     Dates: start: 20050801, end: 20120210
  3. METFORMIN [Concomitant]
     Active Substance: METFORMIN HYDROCHLORIDE
     Route: 065
     Dates: start: 2005
  4. GLUCOPHAGE [Concomitant]
     Active Substance: METFORMIN HYDROCHLORIDE
     Route: 065
     Dates: start: 20120119
  5. GLARGINE [Concomitant]
     Route: 065
     Dates: start: 20110314
  6. ACTOS [Suspect]
     Active Substance: PIOGLITAZONE HYDROCHLORIDE
     Indication: TYPE 2 DIABETES MELLITUS
     Route: 065
     Dates: start: 20050801, end: 20120210
  7. DIABETA [Concomitant]
     Active Substance: GLYBURIDE
     Route: 065
     Dates: start: 2008
  8. LEVEMIR [Concomitant]
     Active Substance: INSULIN DETEMIR
     Route: 065
     Dates: start: 20120119
  9. DIABETA [Concomitant]
     Active Substance: GLYBURIDE
     Route: 065
     Dates: start: 2008

REACTIONS (3)
  - Prostate cancer [Unknown]
  - Bladder cancer [Unknown]
  - Urinary tract disorder [Unknown]

NARRATIVE: CASE EVENT DATE: 2009
